FAERS Safety Report 6710095-8 (Version None)
Quarter: 2010Q2

REPORT INFORMATION
  Report Type: 
  Country: None (occurrence: None)
  Receive Date: 20100430
  Receipt Date: 20100423
  Transmission Date: 20101027
  Serious: Yes (Hospitalization)
  Sender: FDA-Public Use
  Company Number: DSA_43042_2010

PATIENT
  Sex: Female

DRUGS (1)
  1. XENAZINE [Suspect]
     Indication: CHOREA
     Dosage: 12.5 MG TID ORAL
     Route: 048
     Dates: start: 20100324, end: 20100422

REACTIONS (5)
  - BALANCE DISORDER [None]
  - FALL [None]
  - HEAD INJURY [None]
  - POOR QUALITY SLEEP [None]
  - SCREAMING [None]
